FAERS Safety Report 16681540 (Version 2)
Quarter: 2022Q1

REPORT INFORMATION
  Report Type: Spontaneous
  Country: FR (occurrence: FR)
  Receive Date: 20190808
  Receipt Date: 20220201
  Transmission Date: 20220423
  Serious: Yes (Hospitalization, Other)
  Sender: FDA-Public Use
  Company Number: FR-SUN PHARMACEUTICAL INDUSTRIES LTD-2019RR-216864

PATIENT
  Age: 35 Year
  Sex: Male

DRUGS (2)
  1. RISPERIDONE [Suspect]
     Active Substance: RISPERIDONE
     Indication: Delusion
     Dosage: 4 MILLIGRAM
     Route: 065
  2. LOXAPINE [Interacting]
     Active Substance: LOXAPINE
     Indication: Delusion
     Dosage: 25 MILLIGRAM, UNK
     Route: 065

REACTIONS (2)
  - Priapism [Recovered/Resolved]
  - Herbal interaction [Recovered/Resolved]
